FAERS Safety Report 8840773 (Version 4)
Quarter: 2013Q4

REPORT INFORMATION
  Report Type: Spontaneous
  Country: JP (occurrence: JP)
  Receive Date: 20121015
  Receipt Date: 20131017
  Transmission Date: 20140711
  Serious: Yes (Other)
  Sender: FDA-Public Use
  Company Number: PHHY2012JP090750

PATIENT
  Age: 63 Year
  Sex: Male

DRUGS (3)
  1. PRAMIPEXOLE [Suspect]
     Route: 048
     Dates: start: 201204
  2. AMANTADINE HCL [Suspect]
     Route: 048
     Dates: start: 201204
  3. LEVODOPA [Concomitant]
     Route: 048

REACTIONS (2)
  - Disturbance in attention [Unknown]
  - Dyskinesia [Recovering/Resolving]
